FAERS Safety Report 7606630-8 (Version None)
Quarter: 2011Q3

REPORT INFORMATION
  Report Type: 
  Country: None (occurrence: None)
  Receive Date: 20110713
  Receipt Date: 20110705
  Transmission Date: 20111222
  Serious: Yes (Other)
  Sender: FDA-Public Use
  Company Number: PHHY2011US61492

PATIENT
  Age: 54 Year
  Sex: Female
  Weight: 65 kg

DRUGS (11)
  1. VALPROIC ACID [Suspect]
     Indication: CONVULSION
     Dosage: 750 MG, EVERY NIGHT
     Route: 042
  2. CLINDAMYCIN [Concomitant]
     Dosage: 600 MG, Q8H
  3. DORIPENEM MONOHYDRATE [Interacting]
     Dosage: 500 MG, Q8H
     Route: 042
  4. METHYLPREDNISOLONE [Concomitant]
     Dosage: 125 MG, Q6H
     Route: 042
  5. VALPROATE SODIUM [Interacting]
     Dosage: 1000 MG, (15.4 MG/KG)
  6. VALPROATE SODIUM [Interacting]
     Dosage: 750 MG (11.5 MG/KG)
  7. VALPROATE SODIUM [Interacting]
     Dosage: 250 MG, Q8H
  8. VALPROATE SODIUM [Interacting]
     Dosage: 1000 MG, (15.4 MG/KG)
     Route: 040
  9. VALPROATE SODIUM [Interacting]
     Dosage: 1500 MG, (23 MG/KG)
     Route: 042
  10. DOXYCYCLINE [Concomitant]
     Dosage: 100 MG, UNK
     Route: 048
  11. ALBUTEROL SULFATE AND IPRATROPIUM BROMIDE [Concomitant]
     Dosage: UNK UKN, Q4H
     Route: 045

REACTIONS (8)
  - DRUG LEVEL DECREASED [None]
  - CHRONIC OBSTRUCTIVE PULMONARY DISEASE [None]
  - DRUG INTERACTION [None]
  - DYSPNOEA [None]
  - PNEUMONIA ASPIRATION [None]
  - CONVULSION [None]
  - OXYGEN SATURATION DECREASED [None]
  - LUNG DISORDER [None]
